FAERS Safety Report 4804545-1 (Version None)
Quarter: 2005Q4

REPORT INFORMATION
  Report Type: 
  Country: None (occurrence: None)
  Receive Date: 20051020
  Receipt Date: 20050511
  Transmission Date: 20060501
  Serious: Yes (Hospitalization)
  Sender: FDA-Public Use
  Company Number: 200511598FR

PATIENT
  Age: 38 Year
  Sex: Female

DRUGS (3)
  1. LOVENOX [Suspect]
     Route: 058
  2. PREVISCAN [Suspect]
     Route: 048
     Dates: end: 20050310
  3. COUMADIN [Concomitant]
     Route: 048
     Dates: start: 20050310

REACTIONS (6)
  - ALANINE AMINOTRANSFERASE INCREASED [None]
  - ASTHENIA [None]
  - DYSPNOEA [None]
  - HEPATITIS [None]
  - SINUS TACHYCARDIA [None]
  - SYNCOPE VASOVAGAL [None]
